FAERS Safety Report 8120249 (Version 10)
Quarter: 2013Q3

REPORT INFORMATION
  Report Type: Report from Study
  Country: TW (occurrence: TW)
  Receive Date: 20110905
  Receipt Date: 20130718
  Transmission Date: 20140515
  Serious: Yes (Hospitalization, Other)
  Sender: FDA-Public Use
  Company Number: TW-BRISTOL-MYERS SQUIBB COMPANY-15822745

PATIENT
  Age: 82 Year
  Sex: Male

DRUGS (16)
  1. SAXAGLIPTIN [Suspect]
     Indication: TYPE 2 DIABETES MELLITUS
     Dosage: LAST DOSE 31JAN13
     Dates: start: 20101125
  2. GLUCOPHAGE [Suspect]
     Indication: TYPE 2 DIABETES MELLITUS
  3. LANTUS [Suspect]
     Indication: TYPE 2 DIABETES MELLITUS
  4. ETHAMBUTOL [Suspect]
  5. NITRATES [Concomitant]
  6. CHLORPHENIRAMINE [Concomitant]
     Indication: ERYTHEMA
     Route: 048
  7. RINDERON [Concomitant]
     Indication: ECZEMA
  8. POLYTAR [Concomitant]
     Indication: ECZEMA
     Route: 065
  9. NERISONE [Concomitant]
     Indication: ECZEMA
  10. ISONIAZID [Concomitant]
     Indication: TUBERCULOSIS
     Route: 048
  11. ARCOXIA [Concomitant]
     Indication: GOUT
  12. TOLNAFTATE [Concomitant]
  13. HALCION [Concomitant]
     Indication: INSOMNIA
     Route: 048
  14. PYRAZINAMIDE [Concomitant]
     Indication: TUBERCULOSIS
     Route: 048
  15. RIFAMPIN [Concomitant]
     Indication: TUBERCULOSIS
     Route: 048
  16. SIGMART [Concomitant]
     Indication: ANGINA PECTORIS
     Route: 048

REACTIONS (4)
  - Pneumonia [Recovered/Resolved]
  - Erythema [Recovered/Resolved]
  - Tuberculous pleurisy [Recovered/Resolved]
  - Diabetes mellitus inadequate control [Recovered/Resolved]
